FAERS Safety Report 6297849-X (Version None)
Quarter: 2009Q3

REPORT INFORMATION
  Report Type: 
  Country: None (occurrence: None)
  Receive Date: 20090805
  Receipt Date: 20090731
  Transmission Date: 20100115
  Serious: Yes (Other)
  Sender: FDA-Public Use
  Company Number: JP-ALLERGAN-0910744US

PATIENT
  Sex: Male

DRUGS (5)
  1. ALESION TABLET [Suspect]
     Indication: SEASONAL ALLERGY
     Dosage: 10 MG, QD
     Route: 048
  2. ALESION TABLET [Suspect]
     Dosage: 20 MG, QD
     Route: 048
  3. CERCINE [Concomitant]
     Dosage: 15 MG, UNK
     Route: 048
  4. DERMOVATE [Concomitant]
     Indication: ARTHROPOD STING
     Route: 062
  5. HIRUDOID [Concomitant]
     Indication: ARTHROPOD STING
     Dosage: 15 MG, UNK
     Route: 062

REACTIONS (2)
  - HALLUCINATION [None]
  - HALLUCINATION, AUDITORY [None]
